FAERS Safety Report 7577107-3 (Version None)
Quarter: 2011Q2

REPORT INFORMATION
  Report Type: 
  Country: None (occurrence: None)
  Receive Date: 20110628
  Receipt Date: 20110621
  Transmission Date: 20111010
  Serious: Yes (Other)
  Sender: FDA-Public Use
  Company Number: NL-SANOFI-AVENTIS-2011SA015869

PATIENT
  Age: 76 Year
  Sex: Male
  Weight: 99 kg

DRUGS (8)
  1. DRONEDARONE HCL [Suspect]
     Indication: ATRIAL FIBRILLATION
     Route: 048
     Dates: start: 20101111, end: 20110314
  2. ACENOCOUMAROL [Concomitant]
     Dosage: 10MG WEEKLY
  3. SIMVASTATIN [Concomitant]
  4. DENOREX [Concomitant]
  5. METOPROLOL SUCCINATE [Concomitant]
  6. FUROSEMIDE [Concomitant]
  7. IRBESARTAN [Concomitant]
  8. DOVOBET [Concomitant]

REACTIONS (1)
  - TOXIC SKIN ERUPTION [None]
